FAERS Safety Report 15981548 (Version 1)
Quarter: 2019Q1

REPORT INFORMATION
  Report Type: Spontaneous
  Country: JP (occurrence: JP)
  Receive Date: 20190219
  Receipt Date: 20190219
  Transmission Date: 20190418
  Serious: Yes (Hospitalization, Other)
  Sender: FDA-Public Use
  Company Number: JP-BAYER-2019-031788

PATIENT
  Age: 21 Year
  Sex: Male

DRUGS (2)
  1. BAYER ASPIRIN 500 MG [Suspect]
     Active Substance: ASPIRIN
     Dosage: 26.4 G (440MG/KG), ONCE
     Route: 048
  2. ACETAMINOPHEN. [Suspect]
     Active Substance: ACETAMINOPHEN
     Dosage: 5.6 G, ONCE
     Route: 048

REACTIONS (5)
  - Rhabdomyolysis [Recovering/Resolving]
  - Intentional overdose [None]
  - Altered state of consciousness [Recovering/Resolving]
  - Toxicity to various agents [None]
  - Pneumonia aspiration [None]
